FAERS Safety Report 12106635 (Version 2)
Quarter: 2017Q1

REPORT INFORMATION
  Report Type: Spontaneous
  Country: US (occurrence: US)
  Receive Date: 20160223
  Receipt Date: 20170224
  Transmission Date: 20170428
  Serious: Yes (Hospitalization)
  Sender: FDA-Public Use
  Company Number: US-BRACCO-012878

PATIENT
  Age: 39 Year
  Sex: Female

DRUGS (3)
  1. MVI [Concomitant]
     Active Substance: VITAMINS
  2. EPINEPHRINE. [Suspect]
     Active Substance: EPINEPHRINE
     Route: 042
     Dates: start: 20151028, end: 20151028
  3. ISOVUE 300 [Suspect]
     Active Substance: IOPAMIDOL
     Indication: COMPUTERISED TOMOGRAM
     Route: 042
     Dates: start: 20151028, end: 20151028

REACTIONS (2)
  - Hypersensitivity [Recovered/Resolved]
  - Myocardial infarction [Recovered/Resolved]

NARRATIVE: CASE EVENT DATE: 201510
